FAERS Safety Report 10213811 (Version 1)
Quarter: 2014Q2

REPORT INFORMATION
  Report Type: Spontaneous
  Country: CN (occurrence: CN)
  Receive Date: 20140603
  Receipt Date: 20140603
  Transmission Date: 20141212
  Serious: Yes (Hospitalization)
  Sender: FDA-Public Use
  Company Number: CN-SA-2014SA068306

PATIENT
  Age: 77 Year
  Sex: Male

DRUGS (5)
  1. CLOPIDOGREL BISULFATE [Suspect]
     Indication: ANTIPLATELET THERAPY
     Route: 065
  2. ASPIRIN [Concomitant]
     Indication: ANTIPLATELET THERAPY
  3. IPRATROPIUM [Concomitant]
     Indication: ASTHMA
  4. SALMETEROL XINAFOATE [Concomitant]
     Indication: ASTHMA
  5. FLUTICASONE PROPIONATE [Concomitant]
     Indication: ASTHMA

REACTIONS (4)
  - Thrombosis in device [Recovered/Resolved]
  - Drug resistance [Recovered/Resolved]
  - Acute myocardial infarction [Recovered/Resolved]
  - Syncope [Recovered/Resolved]
